FAERS Safety Report 6051241-1 (Version None)
Quarter: 2009Q1

REPORT INFORMATION
  Report Type: 
  Country: None (occurrence: None)
  Receive Date: 20090126
  Receipt Date: 20090121
  Transmission Date: 20090719
  Serious: Yes (Life-Threatening)
  Sender: FDA-Public Use
  Company Number: GB-ASTRAZENECA-2009GB00319

PATIENT
  Age: 68 Year
  Sex: Male
  Weight: 80 kg

DRUGS (8)
  1. MEROPENEM [Suspect]
     Indication: SEPSIS
     Route: 042
     Dates: start: 20081222, end: 20081223
  2. FENTANYL CITRATE [Concomitant]
  3. HEPARIN [Concomitant]
  4. INSULIN HUMAN [Concomitant]
  5. NORADRENALINE [Concomitant]
  6. PANTOPRAZOLE SODIUM [Concomitant]
  7. ACETAMINOPHEN [Concomitant]
  8. VALPROATE SODIUM [Concomitant]

REACTIONS (1)
  - INTRAVASCULAR HAEMOLYSIS [None]
